FAERS Safety Report 6643277-4 (Version None)
Quarter: 2010Q1

REPORT INFORMATION
  Report Type: 
  Country: None (occurrence: None)
  Receive Date: 20100319
  Receipt Date: 20100311
  Transmission Date: 20100710
  Serious: Yes (Other)
  Sender: FDA-Public Use
  Company Number: IT-MPIJNJ-2010-01098

PATIENT

DRUGS (4)
  1. VELCADE [Suspect]
     Indication: MULTIPLE MYELOMA
     Dosage: 1.3 MG/M2, CYCLIC
     Route: 042
     Dates: start: 20071214, end: 20071214
  2. DEXAMETHASONE [Suspect]
     Indication: MULTIPLE MYELOMA
     Dosage: 40 MG/M2, CYCLIC
     Route: 048
     Dates: start: 20071217, end: 20071217
  3. DOXIL [Suspect]
     Indication: MULTIPLE MYELOMA
     Dosage: 60 MG/M2, CYCLIC
     Route: 042
     Dates: start: 20071217, end: 20071217
  4. BACTRIM [Concomitant]
     Indication: DRUG USE FOR UNKNOWN INDICATION
     Dosage: UNK

REACTIONS (1)
  - INTESTINAL INFARCTION [None]
